FAERS Safety Report 9918682 (Version 1)
Quarter: 2014Q1

REPORT INFORMATION
  Report Type: Report from Study
  Country: BR (occurrence: BR)
  Receive Date: 20140224
  Receipt Date: 20140224
  Transmission Date: 20141002
  Serious: Yes (Hospitalization)
  Sender: FDA-Public Use
  Company Number: BR-ROCHE-1354080

PATIENT
  Sex: Female

DRUGS (4)
  1. MABTHERA [Suspect]
     Indication: RHEUMATOID ARTHRITIS
     Route: 065
  2. PREDNISONE [Concomitant]
  3. ENALAPRIL [Concomitant]
  4. PARACETAMOL [Concomitant]

REACTIONS (1)
  - Gallbladder disorder [Not Recovered/Not Resolved]
